FAERS Safety Report 5443306-X (Version None)
Quarter: 2007Q3

REPORT INFORMATION
  Report Type: 
  Country: None (occurrence: None)
  Receive Date: 20070831
  Receipt Date: 20070831
  Transmission Date: 20080115
  Serious: Yes (Other)
  Sender: FDA-Public Use
  Company Number: None

PATIENT
  Age: 51 Year
  Sex: Female
  Weight: 70 kg

DRUGS (1)
  1. COPPERTONE LOTION SPF 30 (AVOBENZONE/HOMOSALATE/OCTISALATE/OCTOCRYLENE [Suspect]
     Indication: DRUG USE FOR UNKNOWN INDICATION
     Dosage: ONCE;TOP
     Route: 061
     Dates: start: 20070815, end: 20070815

REACTIONS (6)
  - ERYTHEMA [None]
  - EYE SWELLING [None]
  - FACE OEDEMA [None]
  - FEELING HOT [None]
  - PAIN [None]
  - PRURITUS [None]
